FAERS Safety Report 4455935-0 (Version None)
Quarter: 2004Q3

REPORT INFORMATION
  Report Type: 
  Country: None (occurrence: None)
  Receive Date: 20040922
  Receipt Date: 20040917
  Transmission Date: 20050211
  Serious: Yes (Life-Threatening, Hospitalization)
  Sender: FDA-Public Use
  Company Number: PHFR2004GB03485

PATIENT
  Sex: Male

DRUGS (2)
  1. DICLOFENAC [Suspect]
     Indication: OSTEOARTHRITIS
     Dosage: 50 MG, TID
     Route: 048
     Dates: end: 20040727
  2. CO-PROXAMOL [Concomitant]
     Dosage: 2 TABLETS QID PRN
     Route: 048

REACTIONS (2)
  - GASTROINTESTINAL HAEMORRHAGE [None]
  - STAPHYLOCOCCAL INFECTION [None]
